FAERS Safety Report 8570750-4 (Version None)
Quarter: 2012Q3

REPORT INFORMATION
  Report Type: 
  Country: None (occurrence: None)
  Receive Date: 20120805
  Receipt Date: 20120724
  Transmission Date: 20120928
  Serious: No
  Sender: FDA-Public Use
  Company Number: US-009507513-1207USA009586

PATIENT

DRUGS (2)
  1. AZASITE [Suspect]
     Indication: BLEPHARITIS
     Dosage: 2 DF, BID
     Route: 047
     Dates: start: 20120723
  2. COUMADIN [Concomitant]

REACTIONS (2)
  - VISION BLURRED [None]
  - PRODUCT QUALITY ISSUE [None]
